FAERS Safety Report 18484721 (Version 2)
Quarter: 2020Q4

REPORT INFORMATION
  Report Type: Spontaneous
  Country: BR (occurrence: BR)
  Receive Date: 20201110
  Receipt Date: 20201209
  Transmission Date: 20210114
  Serious: No
  Sender: FDA-Public Use
  Company Number: BR-GLAXOSMITHKLINE-BR2020AMR219312

PATIENT
  Sex: Female

DRUGS (2)
  1. SERETIDE [Suspect]
     Active Substance: FLUTICASONE PROPIONATE\SALMETEROL XINAFOATE
     Indication: BRONCHITIS
     Dosage: 2 DF (INHALATIONS), BID, 25/125MCG 120 DOSES
     Route: 055
  2. CAPTOPRIL. [Concomitant]
     Active Substance: CAPTOPRIL
     Indication: PRODUCT USED FOR UNKNOWN INDICATION
     Dosage: UNK

REACTIONS (5)
  - Suffocation feeling [Not Recovered/Not Resolved]
  - Cough [Not Recovered/Not Resolved]
  - Product complaint [Unknown]
  - Productive cough [Not Recovered/Not Resolved]
  - Drug ineffective [Unknown]
